FAERS Safety Report 10251238 (Version 1)
Quarter: 2014Q2

REPORT INFORMATION
  Report Type: Spontaneous
  Country: US (occurrence: US)
  Receive Date: 20140621
  Receipt Date: 20140621
  Transmission Date: 20141212
  Serious: No
  Sender: FDA-Public Use
  Company Number: US-GILEAD-2014-0106324

PATIENT
  Sex: Female

DRUGS (2)
  1. LETAIRIS [Suspect]
     Indication: PRODUCT USED FOR UNKNOWN INDICATION
     Dosage: 5 MG, QD
     Route: 065
     Dates: start: 20140602
  2. REVATIO [Concomitant]

REACTIONS (6)
  - Pollakiuria [Unknown]
  - Dyspnoea [Unknown]
  - Oedema peripheral [Unknown]
  - Flushing [Unknown]
  - Hot flush [Unknown]
  - Dizziness [Unknown]
